FAERS Safety Report 19742835 (Version 2)
Quarter: 2021Q3

REPORT INFORMATION
  Report Type: Report from Study
  Country: US (occurrence: US)
  Receive Date: 20210825
  Receipt Date: 20210826
  Transmission Date: 20211014
  Serious: No
  Sender: FDA-Public Use
  Company Number: NVSC2021US184184

PATIENT
  Sex: Female

DRUGS (1)
  1. KESIMPTA [Suspect]
     Active Substance: OFATUMUMAB
     Indication: MULTIPLE SCLEROSIS
     Dosage: 20 MG, QMO BENEATH THE SKIN, USUALLY VIA INJECTION
     Route: 058
     Dates: start: 20210510

REACTIONS (2)
  - Cystitis [Not Recovered/Not Resolved]
  - Sinusitis [Not Recovered/Not Resolved]
